FAERS Safety Report 4541719-1 (Version None)
Quarter: 2004Q4

REPORT INFORMATION
  Report Type: 
  Country: None (occurrence: None)
  Receive Date: 20041227
  Receipt Date: 20041210
  Transmission Date: 20050328
  Serious: Yes (Hospitalization)
  Sender: FDA-Public Use
  Company Number: 8006516

PATIENT
  Age: 35 Year
  Sex: Female

DRUGS (4)
  1. KEPPRA [Suspect]
     Indication: EPILEPSY
     Dosage: PO
     Route: 048
  2. KEPPRA [Suspect]
     Indication: EPILEPSY
     Dosage: 500 MG 2/D, PO
     Route: 048
     Dates: start: 20040101
  3. LAMOTRIGINE [Suspect]
     Indication: EPILEPSY
     Dosage: PO
     Route: 048
  4. LAMOTRIGINE [Suspect]
     Indication: EPILEPSY
     Dosage: 100 MG 2/D PO
     Route: 048
     Dates: start: 20040101

REACTIONS (25)
  - ABSCESS [None]
  - ACUTE ABDOMEN [None]
  - ALCOHOLISM [None]
  - ANTICONVULSANT TOXICITY [None]
  - CONTUSION [None]
  - CONVULSION [None]
  - DEPRESSED LEVEL OF CONSCIOUSNESS [None]
  - DIARRHOEA [None]
  - EXCORIATION [None]
  - GRAND MAL CONVULSION [None]
  - HAEMATOMA [None]
  - HAEMODIALYSIS [None]
  - HAEMORRHAGIC ASCITES [None]
  - HEPATIC CIRRHOSIS [None]
  - HYPOTHERMIA [None]
  - MALNUTRITION [None]
  - MULTIPLE DRUG OVERDOSE INTENTIONAL [None]
  - POLYTRAUMATISM [None]
  - PULMONARY OEDEMA [None]
  - REFUSAL OF TREATMENT BY PATIENT [None]
  - RENAL FAILURE ACUTE [None]
  - RHABDOMYOLYSIS [None]
  - SUICIDAL IDEATION [None]
  - VICTIM OF ABUSE [None]
  - VICTIM OF CRIME [None]
